FAERS Safety Report 8137747-X (Version None)
Quarter: 2012Q1

REPORT INFORMATION
  Report Type: 
  Country: None (occurrence: None)
  Receive Date: 20120215
  Receipt Date: 20120207
  Transmission Date: 20120608
  Serious: Yes (Hospitalization, Other)
  Sender: FDA-Public Use
  Company Number: US-BAYER-2011-040456

PATIENT
  Age: 22 Year
  Sex: Female
  Weight: 54 kg

DRUGS (13)
  1. VITAMIN TAB [Concomitant]
     Dosage: UNK
     Dates: start: 20060815
  2. TRAZODONE HCL [Concomitant]
  3. TRAMADOL HCL [Concomitant]
  4. NAPROXEN [Concomitant]
  5. IBUPROFEN [Concomitant]
     Dosage: 800 MG, UNK
     Route: 048
     Dates: start: 20061003
  6. YASMIN [Suspect]
     Indication: CONTRACEPTION
     Dosage: UNK
     Dates: start: 20040101, end: 20061109
  7. CEPHALEXIN [Concomitant]
     Dosage: UNK
     Dates: start: 20050418, end: 20050425
  8. PREDNISONE TAB [Concomitant]
  9. LORTAB [Concomitant]
  10. FLONASE [Concomitant]
  11. SOMA [Concomitant]
  12. CARISOPRODOL [Concomitant]
     Dosage: 350 MG, UNK
     Route: 048
     Dates: start: 20061003
  13. RELAFEN [Concomitant]

REACTIONS (11)
  - VENA CAVA THROMBOSIS [None]
  - BACK PAIN [None]
  - MUSCLE FATIGUE [None]
  - ANXIETY [None]
  - PAIN IN EXTREMITY [None]
  - DEEP VEIN THROMBOSIS [None]
  - ABORTION SPONTANEOUS [None]
  - GENERAL PHYSICAL HEALTH DETERIORATION [None]
  - OEDEMA PERIPHERAL [None]
  - EMOTIONAL DISTRESS [None]
  - STRESS [None]
